FAERS Safety Report 4679523-6 (Version None)
Quarter: 2005Q2

REPORT INFORMATION
  Report Type: 
  Country: None (occurrence: None)
  Receive Date: 20050602
  Receipt Date: 20050520
  Transmission Date: 20051028
  Serious: Yes (Other)
  Sender: FDA-Public Use
  Company Number: FR-JNJFOC-20050403404

PATIENT
  Age: 39 Year
  Sex: Female
  Weight: 53.5 kg

DRUGS (10)
  1. REMICADE [Suspect]
     Route: 042
  2. REMICADE [Suspect]
     Route: 042
  3. REMICADE [Suspect]
     Route: 042
  4. REMICADE [Suspect]
     Dosage: 2ND INFUSION DATES UNKNOWN.
     Route: 042
  5. REMICADE [Suspect]
     Indication: RHEUMATOID ARTHRITIS
     Route: 042
  6. SPECIAFOLDINE [Concomitant]
     Route: 049
  7. METHOTREXATE [Concomitant]
     Indication: RHEUMATOID ARTHRITIS
     Dosage: TAKEN FOR SEVERAL YEARS
  8. CORTANCYL [Concomitant]
  9. ACTONEL [Concomitant]
  10. OROCAL [Concomitant]
     Route: 049

REACTIONS (3)
  - HYPOACUSIS [None]
  - VISUAL ACUITY REDUCED [None]
  - WEIGHT INCREASED [None]
